FAERS Safety Report 12425161 (Version 1)
Quarter: 2016Q2

REPORT INFORMATION
  Report Type: Spontaneous
  Country: US (occurrence: US)
  Receive Date: 20160601
  Receipt Date: 20160601
  Transmission Date: 20160815
  Serious: Yes (Hospitalization, Other)
  Sender: FDA-Public Use
  Company Number: US-BRISTOL-MYERS SQUIBB COMPANY-BMS-2016-040998

PATIENT
  Sex: Male

DRUGS (1)
  1. KENALOG-40 [Suspect]
     Active Substance: TRIAMCINOLONE ACETONIDE
     Indication: TENDONITIS
     Route: 065

REACTIONS (6)
  - Pollakiuria [Unknown]
  - Troponin increased [Unknown]
  - Hypertension [Recovered/Resolved]
  - Heart rate irregular [Unknown]
  - Coronary artery disease [Unknown]
  - Flushing [Unknown]
